FAERS Safety Report 7962624-4 (Version None)
Quarter: 2011Q4

REPORT INFORMATION
  Report Type: 
  Country: None (occurrence: None)
  Receive Date: 20111207
  Receipt Date: 20111201
  Transmission Date: 20120403
  Serious: Yes (Other)
  Sender: FDA-Public Use
  Company Number: CN-ABBOTT-11P-035-0880273-00

PATIENT
  Age: 30 Year
  Sex: Female

DRUGS (3)
  1. CLONAZEPAM [Concomitant]
     Indication: PRODUCT USED FOR UNKNOWN INDICATION
     Dates: start: 20090101
  2. VALPROIC ACID [Suspect]
     Indication: EPILEPSY
     Dosage: 2.5 TABLETS IN MORNING/2 AT NIGHT
     Route: 048
     Dates: start: 19990101
  3. LAMOTRIGINE [Concomitant]
     Indication: PRODUCT USED FOR UNKNOWN INDICATION
     Dates: start: 20090101

REACTIONS (3)
  - MEDICATION RESIDUE [None]
  - EPILEPSY [None]
  - DRUG LEVEL BELOW THERAPEUTIC [None]
